FAERS Safety Report 25248530 (Version 1)
Quarter: 2025Q2

REPORT INFORMATION
  Report Type: Spontaneous
  Country: GB (occurrence: GB)
  Receive Date: 20250429
  Receipt Date: 20250429
  Transmission Date: 20250717
  Serious: Yes (Death, Other)
  Sender: ALKEM
  Company Number: GB-ALKEM LABORATORIES LIMITED-GB-ALKEM-2025-04148

PATIENT
  Age: 22 Month
  Sex: Female

DRUGS (4)
  1. IBUPROFEN [Suspect]
     Active Substance: IBUPROFEN
     Indication: Product used for unknown indication
     Route: 065
     Dates: start: 20221213
  2. IBUPROFEN [Suspect]
     Active Substance: IBUPROFEN
     Route: 065
  3. CALPOL [Suspect]
     Active Substance: ACETAMINOPHEN
     Indication: Product used for unknown indication
     Route: 065
     Dates: start: 20221213
  4. CALPOL [Suspect]
     Active Substance: ACETAMINOPHEN
     Route: 065

REACTIONS (4)
  - Pneumonia [Fatal]
  - Sepsis [Fatal]
  - Beta haemolytic streptococcal infection [Fatal]
  - Viral infection [Fatal]

NARRATIVE: CASE EVENT DATE: 20221213
